FAERS Safety Report 4505133-7 (Version None)
Quarter: 2004Q4

REPORT INFORMATION
  Report Type: 
  Country: None (occurrence: None)
  Receive Date: 20041117
  Receipt Date: 20041117
  Transmission Date: 20050328
  Serious: Yes (Hospitalization)
  Sender: FDA-Public Use
  Company Number: None

PATIENT
  Age: 85 Year
  Sex: Male

DRUGS (12)
  1. WARFARIN SODIUM [Suspect]
     Indication: ATRIAL FIBRILLATION
     Dosage: 2.5 MG QD
     Dates: start: 20040507
  2. GALANTAMINE [Concomitant]
  3. SERTRALINE HCL [Concomitant]
  4. FELODIPINE [Concomitant]
  5. GOSERELIN [Concomitant]
  6. VITAMIN E [Concomitant]
  7. ALENDROMATE [Concomitant]
  8. ZOCOR [Concomitant]
  9. OSCAL [Concomitant]
  10. DIGOXIN [Concomitant]
  11. FUROSEMIDE [Concomitant]
  12. METOPROLOL [Concomitant]

REACTIONS (1)
  - GASTROINTESTINAL HAEMORRHAGE [None]
